FAERS Safety Report 18572394 (Version 1)
Quarter: 2020Q4

REPORT INFORMATION
  Report Type: Spontaneous
  Country: CH (occurrence: CH)
  Receive Date: 20201202
  Receipt Date: 20201202
  Transmission Date: 20210114
  Serious: Yes (Other)
  Sender: FDA-Public Use
  Company Number: CH-009507513-2012CHE000449

PATIENT
  Age: 49 Year

DRUGS (2)
  1. LETERMOVIR [Suspect]
     Active Substance: LETERMOVIR
     Dosage: 480 MILLIGRAM, QD
     Route: 048
  2. LETERMOVIR [Suspect]
     Active Substance: LETERMOVIR
     Indication: PROPHYLAXIS
     Dosage: 240 MILLIGRAM, QD
     Route: 048

REACTIONS (5)
  - Incorrect dose administered [Unknown]
  - Accidental underdose [Unknown]
  - Off label use [Unknown]
  - Drug resistance [Unknown]
  - Pathogen resistance [Unknown]
